FAERS Safety Report 19476814 (Version 5)
Quarter: 2025Q2

REPORT INFORMATION
  Report Type: Spontaneous
  Country: US (occurrence: US)
  Receive Date: 20210630
  Receipt Date: 20250410
  Transmission Date: 20250717
  Serious: Yes (Other)
  Sender: PFIZER
  Company Number: US-PFIZER INC-2021288808

PATIENT
  Age: 55 Year
  Sex: Female

DRUGS (2)
  1. IBRANCE [Suspect]
     Active Substance: PALBOCICLIB
     Indication: Breast cancer female
     Dates: start: 20210205
  2. IBRANCE [Suspect]
     Active Substance: PALBOCICLIB

REACTIONS (9)
  - Breast cancer female [Unknown]
  - Malignant neoplasm progression [Unknown]
  - Metastases to bone [Unknown]
  - Metastases to lung [Unknown]
  - Dizziness [Unknown]
  - Fatigue [Unknown]
  - Tooth disorder [Unknown]
  - Depression [Unknown]
  - Self-injurious ideation [Unknown]
